FAERS Safety Report 23333442 (Version 1)
Quarter: 2023Q4

REPORT INFORMATION
  Report Type: Spontaneous
  Country: ES (occurrence: ES)
  Receive Date: 20231222
  Receipt Date: 20231222
  Transmission Date: 20240109
  Serious: Yes (Hospitalization, Other)
  Sender: FDA-Public Use
  Company Number: ES-009507513-2312ESP008253

PATIENT
  Age: 64 Year
  Sex: Female

DRUGS (1)
  1. PEMBROLIZUMAB [Suspect]
     Active Substance: PEMBROLIZUMAB
     Indication: Oropharyngeal squamous cell carcinoma
     Dosage: UNK
     Dates: start: 20220118

REACTIONS (8)
  - Ophthalmoplegia [Unknown]
  - Transaminases increased [Unknown]
  - Myositis [Unknown]
  - Myocarditis [Unknown]
  - Therapy partial responder [Unknown]
  - Muscle oedema [Unknown]
  - Toxicity to various agents [Unknown]
  - Rash [Unknown]

NARRATIVE: CASE EVENT DATE: 20220101
